FAERS Safety Report 4990341-1 (Version None)
Quarter: 2006Q2

REPORT INFORMATION
  Report Type: 
  Country: None (occurrence: None)
  Receive Date: 20060503
  Receipt Date: 20060427
  Transmission Date: 20061013
  Serious: Yes (Hospitalization)
  Sender: FDA-Public Use
  Company Number: 2006UW07675

PATIENT
  Age: 45 Year
  Sex: Female
  Weight: 95.3 kg

DRUGS (13)
  1. SEROQUEL [Suspect]
     Indication: BIPOLAR DISORDER
     Route: 048
  2. LIPITOR [Concomitant]
  3. TRAZODONE HCL [Concomitant]
  4. MAGNESIUM OXIDE [Concomitant]
  5. LASIX [Concomitant]
  6. CATAPRES [Concomitant]
  7. ATIVAN [Concomitant]
  8. KLONOPIN [Concomitant]
  9. FLEXERIL [Concomitant]
  10. NEXIUM [Concomitant]
     Route: 048
  11. NEURONTIN [Concomitant]
  12. ZANAFLEX [Concomitant]
  13. LUNESTA [Concomitant]

REACTIONS (11)
  - ABDOMINAL PAIN [None]
  - BLISTER [None]
  - BLOOD CREATINE PHOSPHOKINASE INCREASED [None]
  - BLOOD GLUCOSE INCREASED [None]
  - FLANK PAIN [None]
  - HEPATOCELLULAR DAMAGE [None]
  - HYPERPHAGIA [None]
  - MUSCLE DISORDER [None]
  - MYALGIA [None]
  - RENAL DISORDER [None]
  - WEIGHT INCREASED [None]
